FAERS Safety Report 15208015 (Version 1)
Quarter: 2018Q4

REPORT INFORMATION
  Report Type: Spontaneous
  Country: IL (occurrence: IL)
  Receive Date: 20180727
  Receipt Date: 20180727
  Transmission Date: 20190204
  Serious: Yes (Other)
  Sender: FDA-Public Use
  Company Number: IL-TEVA-2018-IL-931686

PATIENT
  Age: 34 Year

DRUGS (7)
  1. PAROXETINE. [Suspect]
     Active Substance: PAROXETINE
     Indication: OBSESSIVE-COMPULSIVE DISORDER
     Route: 065
  2. PRIZMA /00724402/ [Suspect]
     Active Substance: FLUOXETINE HYDROCHLORIDE
     Dosage: 20 MILLIGRAM DAILY;
     Route: 065
  3. PAXXET [Suspect]
     Active Substance: PAROXETINE HYDROCHLORIDE
     Dosage: 60 MILLIGRAM DAILY;
     Route: 065
  4. SEROXAT [Suspect]
     Active Substance: PAROXETINE HYDROCHLORIDE
     Route: 065
  5. SEROXAT [Suspect]
     Active Substance: PAROXETINE HYDROCHLORIDE
  6. RECITAL (CITALOPRAM HYDROBROMIDE) [Suspect]
     Active Substance: CITALOPRAM HYDROBROMIDE
     Dosage: 20 MILLIGRAM DAILY;
     Route: 065
  7. RISPERDAL [Suspect]
     Active Substance: RISPERIDONE
     Dosage: 1 MILLIGRAM DAILY;
     Route: 065

REACTIONS (10)
  - Obsessive-compulsive disorder [Unknown]
  - Dissociation [Unknown]
  - Thinking abnormal [Unknown]
  - Somnolence [Unknown]
  - Psychotic disorder [Unknown]
  - Sleep disorder [Unknown]
  - Treatment noncompliance [Unknown]
  - Memory impairment [Unknown]
  - Brain injury [Unknown]
  - Impaired work ability [Unknown]
